FAERS Safety Report 21244868 (Version 1)
Quarter: 2022Q3

REPORT INFORMATION
  Report Type: Spontaneous
  Country: US (occurrence: None)
  Receive Date: 20220822
  Receipt Date: 20220822
  Transmission Date: 20221027
  Serious: Yes (Hospitalization)
  Sender: FDA-Public Use
  Company Number: None

PATIENT
  Age: 83 Year
  Sex: Male

DRUGS (18)
  1. AMBRISENTAN [Suspect]
     Active Substance: AMBRISENTAN
     Indication: Pulmonary hypertension
     Dosage: DAILY?
     Route: 048
     Dates: start: 20201123
  2. TADALAFIL [Concomitant]
     Active Substance: TADALAFIL
  3. UPTRAVI [Concomitant]
     Active Substance: SELEXIPAG
  4. WARFARIN [Concomitant]
     Active Substance: WARFARIN
  5. TYLENOL [Concomitant]
     Active Substance: ACETAMINOPHEN
  6. CALCIUM CARBONATE\CHOLECALCIFEROL [Concomitant]
     Active Substance: CALCIUM CARBONATE\CHOLECALCIFEROL
  7. ATORVASTATIN [Concomitant]
     Active Substance: ATORVASTATIN
  8. PANTOPRAZOLE [Concomitant]
     Active Substance: PANTOPRAZOLE
  9. TORSEMIDE [Concomitant]
     Active Substance: TORSEMIDE
  10. SPIRONOLACTONE [Concomitant]
     Active Substance: SPIRONOLACTONE
  11. MIRALAX [Concomitant]
     Active Substance: POLYETHYLENE GLYCOL 3350
  12. ALBUTEROL SULFATE [Concomitant]
     Active Substance: ALBUTEROL SULFATE
  13. Lidocaine top patch [Concomitant]
  14. HYDROXYZINE [Concomitant]
     Active Substance: HYDROXYZINE HYDROCHLORIDE
  15. Hydrocortisone top cream [Concomitant]
  16. Caladryl clear top lotion [Concomitant]
  17. Benadryl top cream [Concomitant]
  18. Sarna top lotion [Concomitant]

REACTIONS (7)
  - COVID-19 [None]
  - Diarrhoea [None]
  - Asthenia [None]
  - Hypophagia [None]
  - Dehydration [None]
  - Hypotension [None]
  - Hospice care [None]

NARRATIVE: CASE EVENT DATE: 20220716
